FAERS Safety Report 7702767-3 (Version None)
Quarter: 2011Q3

REPORT INFORMATION
  Report Type: 
  Country: None (occurrence: None)
  Receive Date: 20110817
  Receipt Date: 20110809
  Transmission Date: 20111222
  Serious: Yes (Death)
  Sender: FDA-Public Use
  Company Number: JPI-P-014781

PATIENT
  Age: 84 Year
  Sex: Male

DRUGS (4)
  1. XYREM [Suspect]
     Indication: PRODUCT USED FOR UNKNOWN INDICATION
     Dosage: 4.5 GM (2.25 GM, 2 IN 1 D), ORAL 6 GM (3 GM, 2 IN 1 D), ORAL 3 GM (1.5 GM, 2 IN 1 D), ORAL
     Route: 048
     Dates: start: 20030702, end: 20040701
  2. XYREM [Suspect]
     Indication: PRODUCT USED FOR UNKNOWN INDICATION
     Dosage: 4.5 GM (2.25 GM, 2 IN 1 D), ORAL 6 GM (3 GM, 2 IN 1 D), ORAL 3 GM (1.5 GM, 2 IN 1 D), ORAL
     Route: 048
     Dates: start: 20061009, end: 20070618
  3. XYREM [Suspect]
     Indication: PRODUCT USED FOR UNKNOWN INDICATION
     Dosage: 4.5 GM (2.25 GM, 2 IN 1 D), ORAL 6 GM (3 GM, 2 IN 1 D), ORAL 3 GM (1.5 GM, 2 IN 1 D), ORAL
     Route: 048
     Dates: start: 20040726, end: 20061001
  4. XYREM [Suspect]
     Indication: PRODUCT USED FOR UNKNOWN INDICATION
     Dosage: 4.5 GM (2.25 GM, 2 IN 1 D), ORAL 6 GM (3 GM, 2 IN 1 D), ORAL 3 GM (1.5 GM, 2 IN 1 D), ORAL
     Route: 048
     Dates: start: 20030421, end: 20030701

REACTIONS (1)
  - DEATH [None]
